FAERS Safety Report 9353202 (Version 1)
Quarter: 2013Q2

REPORT INFORMATION
  Report Type: Spontaneous
  Country: US (occurrence: None)
  Receive Date: 20130612
  Receipt Date: 20130612
  Transmission Date: 20140414
  Serious: Yes (Other)
  Sender: FDA-Public Use
  Company Number: 2013-239

PATIENT
  Age: 40 Year
  Sex: Female

DRUGS (1)
  1. PRIALT (ZICONOTIDE) INTRATHECAL INFUSION [Suspect]
     Indication: PAIN
     Route: 037
     Dates: start: 20130222, end: 20130227

REACTIONS (3)
  - Seroma [None]
  - Cerebrospinal fluid leakage [None]
  - Device issue [None]
